FAERS Safety Report 8877326 (Version 1)
Quarter: 2012Q4

REPORT INFORMATION
  Report Type: 
  Country: US (occurrence: US)
  Receive Date: 20121023
  Receipt Date: 20121023
  Transmission Date: 20130627
  Serious: No
  Sender: FDA-Public Use
  Company Number: US-AMGEN-USASP2012057125

PATIENT
  Age: 53 Year
  Sex: Male
  Weight: 72.56 kg

DRUGS (10)
  1. ENBREL [Suspect]
     Indication: PRODUCT USED FOR UNKNOWN INDICATION
     Dosage: 50 mg, qwk
     Route: 058
     Dates: start: 20120814
  2. PREDNISONE [Concomitant]
     Dosage: 1 mg, UNK
  3. TRIAMTERENE [Concomitant]
     Dosage: 25 mg, UNK
  4. TRIAMTERENE [Concomitant]
     Dosage: 50 mg, UNK
  5. LISINOPRIL [Concomitant]
     Dosage: 2.5 mg, UNK
  6. MULTIVITAMINS, PLAIN [Concomitant]
  7. CALCIUM [Concomitant]
     Dosage: 500 UNK, UNK
  8. FISH OIL [Concomitant]
     Dosage: UNK
  9. METHOTREXATE [Concomitant]
     Dosage: 2.5 mg, UNK
  10. FOLIC ACID [Concomitant]
     Dosage: UNK

REACTIONS (4)
  - Injection site erythema [Unknown]
  - Injection site rash [Unknown]
  - Injection site pruritus [Unknown]
  - Injection site swelling [Not Recovered/Not Resolved]
